FAERS Safety Report 18605351 (Version 1)
Quarter: 2020Q4

REPORT INFORMATION
  Report Type: Spontaneous
  Country: CN (occurrence: CN)
  Receive Date: 20201211
  Receipt Date: 20201211
  Transmission Date: 20210114
  Serious: Yes (Other)
  Sender: FDA-Public Use
  Company Number: CN-JNJFOC-20201208904

PATIENT
  Age: 57 Year
  Sex: Female
  Weight: 61.5 kg

DRUGS (1)
  1. TRAMADOL HYDROCHLORIDE. [Suspect]
     Active Substance: TRAMADOL HYDROCHLORIDE
     Indication: PAIN
     Dosage: 0.1 GRAM, 1/DAY
     Route: 030
     Dates: start: 20201117, end: 20201117

REACTIONS (4)
  - Pallor [Recovering/Resolving]
  - Abdominal pain [Recovering/Resolving]
  - Hyperhidrosis [Recovering/Resolving]
  - Heart rate increased [Recovering/Resolving]

NARRATIVE: CASE EVENT DATE: 20201117
